FAERS Safety Report 6857563-6 (Version None)
Quarter: 2010Q3

REPORT INFORMATION
  Report Type: 
  Country: None (occurrence: None)
  Receive Date: 20100719
  Receipt Date: 20080125
  Transmission Date: 20110219
  Serious: No
  Sender: FDA-Public Use
  Company Number: US-PFIZER INC-2008008885

PATIENT
  Sex: Female
  Weight: 45.4 kg

DRUGS (6)
  1. CHANTIX [Suspect]
     Indication: SMOKING CESSATION THERAPY
     Route: 048
     Dates: start: 20080114
  2. NEURONTIN [Concomitant]
  3. BACLOFEN [Concomitant]
  4. BOTOX [Concomitant]
     Indication: SPINAL CORD INJURY
  5. ALL OTHER THERAPEUTIC PRODUCTS [Concomitant]
  6. PERCOCET [Concomitant]

REACTIONS (2)
  - FEELING ABNORMAL [None]
  - VOMITING [None]
